FAERS Safety Report 14295911 (Version 2)
Quarter: 2019Q3

REPORT INFORMATION
  Report Type: Spontaneous
  Country: US (occurrence: US)
  Receive Date: 20171218
  Receipt Date: 20190712
  Transmission Date: 20191004
  Serious: Yes (Hospitalization, Other)
  Sender: FDA-Public Use
  Company Number: US-BIOGEN-2017BI00497670

PATIENT
  Age: 32 Year
  Sex: Female

DRUGS (1)
  1. TYSABRI [Suspect]
     Active Substance: NATALIZUMAB
     Indication: MULTIPLE SCLEROSIS
     Route: 050
     Dates: start: 20150202

REACTIONS (5)
  - Sepsis [Unknown]
  - Asthma [Unknown]
  - Cellulitis [Unknown]
  - Pneumonia [Unknown]
  - Candida infection [Unknown]

NARRATIVE: CASE EVENT DATE: 201710
